FAERS Safety Report 25400261 (Version 2)
Quarter: 2025Q2

REPORT INFORMATION
  Report Type: Report from Study
  Country: PL (occurrence: PL)
  Receive Date: 20250605
  Receipt Date: 20250618
  Transmission Date: 20250716
  Serious: Yes (Other)
  Sender: AUROBINDO
  Company Number: PL-AUROBINDO-AUR-APL-2025-025191

PATIENT
  Age: 58 Year
  Sex: Female

DRUGS (3)
  1. TRAMADOL [Interacting]
     Active Substance: TRAMADOL
     Indication: Back pain
     Dosage: 100 MILLIGRAM, 3 TIMES A DAY
     Route: 048
  2. TOLPERISONE [Interacting]
     Active Substance: TOLPERISONE
     Indication: Back pain
     Dosage: 150 MILLIGRAM, TWO TIMES A DAY
     Route: 065
  3. ACETAMINOPHEN [Concomitant]
     Active Substance: ACETAMINOPHEN
     Indication: Back pain
     Route: 065

REACTIONS (7)
  - Pain [Unknown]
  - Drug interaction [Unknown]
  - Drug ineffective [Unknown]
  - Back pain [Unknown]
  - Enzyme inhibition [Unknown]
  - Inhibitory drug interaction [Unknown]
  - Therapeutic product effect decreased [Unknown]
